FAERS Safety Report 15119393 (Version 1)
Quarter: 2018Q3

REPORT INFORMATION
  Report Type: Spontaneous
  Country: US (occurrence: US)
  Receive Date: 20180612
  Receipt Date: 20180612
  Transmission Date: 20181010
  Serious: Yes (Hospitalization)
  Sender: FDA-Public Use
  Company Number: None

PATIENT
  Age: 76 Year
  Sex: Female
  Weight: 134.3 kg

DRUGS (5)
  1. CEFTRIAXONE. [Concomitant]
     Active Substance: CEFTRIAXONE
  2. FUROSEMIDE. [Concomitant]
     Active Substance: FUROSEMIDE
  3. MIDAZOLAM [Suspect]
     Active Substance: MIDAZOLAM HYDROCHLORIDE
     Indication: ECHOCARDIOGRAM
     Route: 042
  4. FENTANYL. [Suspect]
     Active Substance: FENTANYL
     Indication: ECHOCARDIOGRAM
     Route: 042
  5. LIDOCAINE. [Concomitant]
     Active Substance: LIDOCAINE

REACTIONS (4)
  - Bradypnoea [None]
  - Hypoxia [None]
  - Somnolence [None]
  - Heart rate decreased [None]

NARRATIVE: CASE EVENT DATE: 20180320
